FAERS Safety Report 16332996 (Version 1)
Quarter: 2019Q2

REPORT INFORMATION
  Report Type: Spontaneous
  Country: GB (occurrence: GB)
  Receive Date: 20190520
  Receipt Date: 20190520
  Transmission Date: 20190711
  Serious: Yes (Other)
  Sender: FDA-Public Use
  Company Number: GB-TEVA-2019-GB-1051234

PATIENT
  Age: 59 Year
  Sex: Female
  Weight: 52.1 kg

DRUGS (6)
  1. MULTIVITAMIN [Concomitant]
     Active Substance: VITAMINS
  2. FEMOSTON-CONTI [Concomitant]
     Active Substance: DYDROGESTERONE\ESTRADIOL
     Dosage: 0.5MG/2.5MG
  3. LANSOPRAZOLE. [Concomitant]
     Active Substance: LANSOPRAZOLE
  4. ZOPICLONE [Concomitant]
     Active Substance: ZOPICLONE
  5. NAPROXEN. [Suspect]
     Active Substance: NAPROXEN
     Indication: PAIN
     Dosage: 1000 MILLIGRAM DAILY;
  6. GLUCOSAMINE WITH CHONDROITIN [Concomitant]

REACTIONS (4)
  - Constipation [Not Recovered/Not Resolved]
  - Haemorrhoids [Not Recovered/Not Resolved]
  - Contraindicated product prescribed [Unknown]
  - Dyschezia [Not Recovered/Not Resolved]
